FAERS Safety Report 17769344 (Version 2)
Quarter: 2020Q2

REPORT INFORMATION
  Report Type: Spontaneous
  Country: DE (occurrence: DE)
  Receive Date: 20200512
  Receipt Date: 20200529
  Transmission Date: 20200714
  Serious: Yes (Death, Life-Threatening, Hospitalization, Other)
  Sender: FDA-Public Use
  Company Number: DE-ROCHE-2458917

PATIENT
  Age: 60 Year
  Sex: Male

DRUGS (8)
  1. RITUXIMAB. [Suspect]
     Active Substance: RITUXIMAB
     Indication: IMMUNOSUPPRESSION
     Route: 065
  2. BORTEZOMIB. [Suspect]
     Active Substance: BORTEZOMIB
     Indication: IMMUNOSUPPRESSION
     Dosage: 1-1.3 MG/M2
     Route: 065
  3. METHYLPREDNISOLONE. [Suspect]
     Active Substance: METHYLPREDNISOLONE
     Indication: IMMUNOSUPPRESSION
     Route: 065
  4. ACICLOVIR [Concomitant]
     Active Substance: ACYCLOVIR
     Route: 065
  5. DARATUMUMAB [Suspect]
     Active Substance: DARATUMUMAB
     Indication: IMMUNOSUPPRESSION
     Route: 042
  6. PREDNISOLONE. [Suspect]
     Active Substance: PREDNISOLONE
     Indication: ENCEPHALITIS AUTOIMMUNE
     Dosage: RECEIVED FOR 2 AND HALF YEARS
     Route: 048
  7. PREDNISOLONE. [Suspect]
     Active Substance: PREDNISOLONE
     Dosage: TAPERING-REGIMEN
     Route: 048
  8. COTRIMOXAZOLE [Concomitant]
     Active Substance: SULFAMETHOXAZOLE\TRIMETHOPRIM
     Route: 065

REACTIONS (15)
  - Cognitive disorder [Recovering/Resolving]
  - Urinary tract infection [Unknown]
  - Condition aggravated [Recovering/Resolving]
  - Cerebellar ataxia [Recovering/Resolving]
  - Cellulitis [Unknown]
  - Encephalitis autoimmune [Recovering/Resolving]
  - Septic shock [Unknown]
  - Infection [Unknown]
  - Breathing-related sleep disorder [Unknown]
  - Neuromyotonia [Recovering/Resolving]
  - Rebound effect [Recovering/Resolving]
  - Seizure [Recovering/Resolving]
  - Aggression [Unknown]
  - Cellulitis [Recovered/Resolved]
  - Bacterial sepsis [Fatal]

NARRATIVE: CASE EVENT DATE: 2017
